FAERS Safety Report 14580768 (Version 1)
Quarter: 2018Q1

REPORT INFORMATION
  Report Type: Spontaneous
  Country: GB (occurrence: FR)
  Receive Date: 20180228
  Receipt Date: 20180228
  Transmission Date: 20180509
  Serious: Yes (Hospitalization)
  Sender: FDA-Public Use
  Company Number: FR-FRESENIUS KABI-FK201802175

PATIENT
  Age: 31 Year
  Sex: Female
  Weight: 54 kg

DRUGS (4)
  1. OXALIPLATIN  ACCORD [Concomitant]
     Active Substance: OXALIPLATIN
     Indication: NEOPLASM MALIGNANT
     Route: 041
     Dates: start: 20171128, end: 20171128
  2. IRINOTECAN 20 MG/ML CONCENTRATE FOR SOLUTION FOR INFUSION [Suspect]
     Active Substance: IRINOTECAN
     Indication: NEOPLASM MALIGNANT
     Route: 041
     Dates: start: 20171128, end: 20171128
  3. LEVOFOLINATE SODIUM [Suspect]
     Active Substance: LEVOLEUCOVORIN DISODIUM
     Indication: PRODUCT USED FOR UNKNOWN INDICATION
     Route: 041
     Dates: start: 20171128, end: 20171128
  4. VECTIBIX [Concomitant]
     Active Substance: PANITUMUMAB
     Indication: NEOPLASM MALIGNANT
     Route: 041
     Dates: start: 20171128, end: 20171128

REACTIONS (3)
  - Muscle spasms [Recovered/Resolved]
  - Blepharospasm [Recovered/Resolved]
  - Fine motor delay [Recovered/Resolved]

NARRATIVE: CASE EVENT DATE: 20171128
